FAERS Safety Report 7899909 (Version 4)
Quarter: 2016Q4

REPORT INFORMATION
  Report Type: Report from Study
  Country: AR (occurrence: AR)
  Receive Date: 20110414
  Receipt Date: 20161115
  Transmission Date: 20170207
  Serious: Yes (Other)
  Sender: FDA-Public Use
  Company Number: AR-PFIZER INC-2011079018

PATIENT
  Age: 67 Year
  Sex: Female
  Weight: 95.5 kg

DRUGS (14)
  1. ROSUVASTATIN. [Concomitant]
     Active Substance: ROSUVASTATIN
     Indication: DYSLIPIDAEMIA
     Dosage: 10 MG, 1X/DAY
     Route: 048
     Dates: start: 20100127
  2. MYFORTIC [Concomitant]
     Active Substance: MYCOPHENOLATE SODIUM
     Indication: IMMUNOSUPPRESSION
     Dosage: 720 MG, 1X/DAY
     Route: 048
     Dates: start: 20091104
  3. ERYTHROPOIETIN [Concomitant]
     Active Substance: ERYTHROPOIETIN
     Indication: ANAEMIA
     Dosage: 8000 IU, MONTHLY
     Route: 058
     Dates: start: 20091121
  4. DIOVAN ^CIBA-GEIGY^ [Concomitant]
     Indication: HYPERTENSION
     Dosage: 160 MG, 1X/DAY
     Route: 048
     Dates: start: 20091130, end: 20101215
  5. SIROLIMUS. [Suspect]
     Active Substance: SIROLIMUS
     Dosage: 4 MG, 1X/DAY
     Route: 048
     Dates: start: 20091124, end: 20100804
  6. ENALAPRIL [Concomitant]
     Active Substance: ENALAPRIL
     Indication: HYPERTENSION
     Dosage: 5 MG, 1X/DAY
     Route: 048
  7. VITAMIN B [Concomitant]
     Active Substance: VITAMIN B
     Indication: ANAEMIA
     Dosage: 5000 IU, 1X/DAY
     Route: 048
  8. SINTROM [Concomitant]
     Active Substance: ACENOCOUMAROL
     Indication: THROMBOSIS PROPHYLAXIS
     Dosage: 19 MG, WEEKLY
     Route: 048
     Dates: start: 20100603, end: 20110121
  9. FOLIC ACID. [Concomitant]
     Active Substance: FOLIC ACID
     Indication: OSTEOPENIA
     Dosage: 30 MG, 1X/DAY
     Route: 048
  10. CALCITRIOL. [Concomitant]
     Active Substance: CALCITRIOL
     Indication: OSTEOPENIA
     Dosage: 0.25 UG, 1X/DAY
     Route: 048
     Dates: end: 20110110
  11. BACTRIM [Concomitant]
     Active Substance: SULFAMETHOXAZOLE\TRIMETHOPRIM
     Indication: PROPHYLAXIS
     Dosage: 800 MG/160 MG, 3X/WEEK
     Route: 048
     Dates: start: 20090730
  12. MEPREDNISONE [Concomitant]
     Active Substance: MEPREDNISONE
     Indication: IMMUNOSUPPRESSION
     Dosage: 8 MG, 1X/DAY
     Route: 048
     Dates: start: 20091106
  13. OMEPRAZOL [Concomitant]
     Active Substance: OMEPRAZOLE
     Indication: PROPHYLAXIS
     Dosage: 20 MG, 1X/DAY
     Route: 048
     Dates: start: 20091121
  14. CORBIS [Concomitant]
     Indication: HYPERTENSION
     Dosage: 5 MG, 1X/DAY
     Route: 048
     Dates: start: 20100415

REACTIONS (2)
  - Dyspnoea [Recovered/Resolved]
  - Oedema [Recovered/Resolved]

NARRATIVE: CASE EVENT DATE: 20100726
